FAERS Safety Report 5485705-6 (Version None)
Quarter: 2007Q4

REPORT INFORMATION
  Report Type: 
  Country: None (occurrence: None)
  Receive Date: 20071015
  Receipt Date: 20071004
  Transmission Date: 20080405
  Serious: Yes (Disabling)
  Sender: FDA-Public Use
  Company Number: GB-ROCHE-523689

PATIENT
  Age: 75 Year
  Sex: Female
  Weight: 96 kg

DRUGS (6)
  1. NAPROXEN [Suspect]
     Indication: PELVIC PAIN
     Route: 048
     Dates: start: 20070806, end: 20070907
  2. ATENOLOL [Concomitant]
     Route: 048
  3. DICLOFENAC SODIUM [Concomitant]
     Route: 048
  4. DOXYCYCLINE [Concomitant]
  5. INDAPAMIDE [Concomitant]
     Route: 048
  6. OMEPRAZOLE [Concomitant]
     Route: 048

REACTIONS (4)
  - COUGH [None]
  - HYPERSENSITIVITY [None]
  - INCREASED BRONCHIAL SECRETION [None]
  - WHEEZING [None]
